FAERS Safety Report 5447665-3 (Version None)
Quarter: 2007Q3

REPORT INFORMATION
  Report Type: 
  Country: None (occurrence: None)
  Receive Date: 20070910
  Receipt Date: 20070830
  Transmission Date: 20080115
  Serious: Yes (Hospitalization)
  Sender: FDA-Public Use
  Company Number: B0486206A

PATIENT
  Age: 3 Year
  Sex: Male
  Weight: 14.7 kg

DRUGS (1)
  1. CHILDREN'S PANADOL COLOURFREE SUSPENSION [Suspect]
     Indication: ACCIDENTAL OVERDOSE
     Route: 050
     Dates: start: 20070827

REACTIONS (3)
  - ACCIDENTAL OVERDOSE [None]
  - PHARMACEUTICAL PRODUCT COMPLAINT [None]
  - PSYCHOMOTOR HYPERACTIVITY [None]
